FAERS Safety Report 7539740-4 (Version None)
Quarter: 2011Q2

REPORT INFORMATION
  Report Type: 
  Country: None (occurrence: None)
  Receive Date: 20110610
  Receipt Date: 20110607
  Transmission Date: 20111010
  Serious: Yes (Other)
  Sender: FDA-Public Use
  Company Number: US-PFIZER INC-2011085835

PATIENT
  Sex: Female
  Weight: 78 kg

DRUGS (16)
  1. LUVOX [Interacting]
     Indication: DEPRESSION
     Dosage: 50 MG, 1X/DAY
  2. RISPERDAL [Interacting]
     Indication: DEPRESSION
     Dosage: 2 MG, 1X/DAY
  3. RISPERDAL [Interacting]
     Indication: POST-TRAUMATIC STRESS DISORDER
  4. LUVOX [Interacting]
     Indication: ANXIETY
  5. RISPERDAL [Interacting]
     Indication: PARANOIA
  6. LUVOX [Interacting]
     Indication: OBSESSIVE-COMPULSIVE DISORDER
  7. LUVOX [Interacting]
     Indication: POST-TRAUMATIC STRESS DISORDER
  8. LEVOX [Concomitant]
     Indication: POST-TRAUMATIC STRESS DISORDER
     Dosage: UNK
  9. LEVOX [Concomitant]
     Indication: OBSESSIVE-COMPULSIVE DISORDER
  10. RISPERDAL [Interacting]
     Indication: OBSESSIVE-COMPULSIVE DISORDER
  11. LUVOX [Interacting]
     Indication: PARANOIA
  12. CIPROFLOXACIN [Concomitant]
     Indication: URINARY TRACT INFECTION
     Dosage: UNK
     Dates: start: 20110401
  13. RISPERDAL [Interacting]
     Indication: ANXIETY
  14. LEVOX [Concomitant]
     Indication: DEPRESSION
  15. LEVOX [Concomitant]
     Indication: ANXIETY
  16. CHANTIX [Suspect]
     Indication: SMOKING CESSATION THERAPY
     Dosage: 0.5 MG, 1X/DAY
     Route: 048
     Dates: start: 20110410, end: 20110521

REACTIONS (4)
  - DEPRESSION [None]
  - ANXIETY [None]
  - PARANOIA [None]
  - OBSESSIVE-COMPULSIVE DISORDER [None]
